FAERS Safety Report 7283722-7 (Version None)
Quarter: 2011Q1

REPORT INFORMATION
  Report Type: 
  Country: None (occurrence: None)
  Receive Date: 20110209
  Receipt Date: 20110128
  Transmission Date: 20110831
  Serious: Yes (Other)
  Sender: FDA-Public Use
  Company Number: US-ELI_LILLY_AND_COMPANY-US201012004853

PATIENT
  Age: 6 Year
  Sex: Female
  Weight: 17 kg

DRUGS (2)
  1. ZYPREXA [Suspect]
     Dosage: 10 MG, UNK
  2. ZYRTEC [Concomitant]
     Dosage: 10 MG, DAILY (1/D)

REACTIONS (13)
  - ACCIDENTAL OVERDOSE [None]
  - GAIT DISTURBANCE [None]
  - AGITATION [None]
  - CRYING [None]
  - MEDICATION ERROR [None]
  - RASH PRURITIC [None]
  - ATAXIA [None]
  - LETHARGY [None]
  - ABNORMAL BEHAVIOUR [None]
  - DYSARTHRIA [None]
  - DEPRESSED LEVEL OF CONSCIOUSNESS [None]
  - TREMOR [None]
  - VOMITING [None]
